FAERS Safety Report 6104125-4 (Version None)
Quarter: 2009Q1

REPORT INFORMATION
  Report Type: 
  Country: None (occurrence: None)
  Receive Date: 20090227
  Receipt Date: 20090216
  Transmission Date: 20090719
  Serious: Yes (Hospitalization)
  Sender: FDA-Public Use
  Company Number: 1000004849

PATIENT
  Age: 78 Year
  Sex: Male

DRUGS (5)
  1. ESCITALOPRAM [Suspect]
     Indication: DEPRESSION
     Dosage: 20 MG (20 MG, 1 IN 1 D), ORAL
     Route: 048
  2. NOVOMIX (INJECTION) [Suspect]
     Indication: INSULIN-REQUIRING TYPE 2 DIABETES MELLITUS
     Dosage: 66 IU (66 IU, 1 IN 1 D), SUBCUTANEOUS
     Route: 058
  3. CELECTOL [Suspect]
     Indication: HYPERTENSION
     Dosage: 200 MG (200 MG, 1 IN 1 D), ORAL
     Route: 048
  4. TELFAST [Concomitant]
  5. PREVISCAN [Concomitant]

REACTIONS (7)
  - ALTERED STATE OF CONSCIOUSNESS [None]
  - ASTHENIA [None]
  - CONFUSIONAL STATE [None]
  - DRUG INTERACTION [None]
  - FALL [None]
  - HYPOGLYCAEMIA [None]
  - SOMNOLENCE [None]
